FAERS Safety Report 6745826-4 (Version None)
Quarter: 2010Q2

REPORT INFORMATION
  Report Type: 
  Country: None (occurrence: None)
  Receive Date: 20100528
  Receipt Date: 20100518
  Transmission Date: 20101027
  Serious: Yes (Other)
  Sender: FDA-Public Use
  Company Number: DE-BRISTOL-MYERS SQUIBB COMPANY-15089303

PATIENT
  Age: 68 Year
  Sex: Female
  Weight: 68 kg

DRUGS (7)
  1. ONGLYZA [Suspect]
     Indication: BLOOD GLUCOSE DECREASED
     Route: 048
     Dates: start: 20100401
  2. ASPIRIN [Suspect]
     Route: 048
  3. LEVOTHYROXINE SODIUM [Concomitant]
     Dosage: 1DF-25MG TABS 1.5TABS/DAY
     Route: 048
  4. AMILORIDE HYDROCHLORIDE [Concomitant]
  5. TILIDINE [Concomitant]
     Dosage: 1DF-100/8(UNITS NOT SPECIFIED)
  6. ACTIVELLE [Concomitant]
  7. BISOHEXAL [Concomitant]

REACTIONS (1)
  - HAEMORRHAGE SUBCUTANEOUS [None]
